FAERS Safety Report 24917978 (Version 1)
Quarter: 2025Q1

REPORT INFORMATION
  Report Type: Spontaneous
  Country: BE (occurrence: BE)
  Receive Date: 20250203
  Receipt Date: 20250203
  Transmission Date: 20250408
  Serious: Yes (Death, Other)
  Sender: ALEXION PHARMACEUTICALS
  Company Number: BE-ASTRAZENECA-202501EEA025025BE

PATIENT
  Age: 67 Year

DRUGS (1)
  1. LYNPARZA [Suspect]
     Active Substance: OLAPARIB
     Indication: Ovarian cancer
     Dosage: 600 MILLIGRAM, QD
     Route: 065

REACTIONS (4)
  - Myelodysplastic syndrome [Fatal]
  - Acute myeloid leukaemia [Fatal]
  - Malignant neoplasm progression [Unknown]
  - Metastases to liver [Unknown]
